FAERS Safety Report 4829040-5 (Version None)
Quarter: 2005Q4

REPORT INFORMATION
  Report Type: 
  Country: None (occurrence: None)
  Receive Date: 20051027
  Receipt Date: 20050418
  Transmission Date: 20060501
  Serious: Yes (Hospitalization)
  Sender: FDA-Public Use
  Company Number: 200511970US

PATIENT
  Age: 46 Year
  Sex: Female

DRUGS (4)
  1. ARAVA [Suspect]
     Indication: RHEUMATOID ARTHRITIS
     Dosage: 60 MG QD PO
     Route: 048
     Dates: start: 20040920, end: 20040924
  2. ARAVA [Suspect]
     Indication: RHEUMATOID ARTHRITIS
     Dosage: 10 MG QD PO
     Route: 048
     Dates: start: 20040901
  3. ARAVA [Suspect]
     Indication: RHEUMATOID ARTHRITIS
     Dosage: 5 MG QD PO
     Route: 048
     Dates: end: 20041101
  4. METHOTREXATE [Concomitant]

REACTIONS (7)
  - CONTUSION [None]
  - DYSPNOEA [None]
  - HYPERSENSITIVITY [None]
  - PAIN IN EXTREMITY [None]
  - PHARYNGEAL OEDEMA [None]
  - SWELLING FACE [None]
  - SWOLLEN TONGUE [None]
